FAERS Safety Report 9303600 (Version 1)
Quarter: 2013Q2

REPORT INFORMATION
  Report Type: Spontaneous
  Country: US (occurrence: None)
  Receive Date: 20130521
  Receipt Date: 20130521
  Transmission Date: 20140414
  Serious: Yes (Life-Threatening, Hospitalization, Disabling)
  Sender: FDA-Public Use
  Company Number: None

PATIENT
  Age: 39 Year
  Sex: Female
  Weight: 60.33 kg

DRUGS (2)
  1. GUAIFENESIN AND CODEINE PHOSPHATE [Suspect]
     Dosage: TSP @ BEDTIME
     Route: 048
     Dates: start: 20121222, end: 20121227
  2. CHERATUSSIN AC [Suspect]
     Indication: COUGH
     Route: 048
     Dates: start: 20121228, end: 20130102

REACTIONS (2)
  - Cerebrovascular accident [None]
  - Impaired work ability [None]
